FAERS Safety Report 7492424-3 (Version None)
Quarter: 2011Q2

REPORT INFORMATION
  Report Type: 
  Country: None (occurrence: None)
  Receive Date: 20110519
  Receipt Date: 20110513
  Transmission Date: 20111010
  Serious: Yes (Death)
  Sender: FDA-Public Use
  Company Number: CA-ROXANE LABORATORIES, INC.-2011-RO-00665RO

PATIENT

DRUGS (1)
  1. METHADONE HCL [Suspect]

REACTIONS (1)
  - SEPSIS [None]
